FAERS Safety Report 8492462-8 (Version None)
Quarter: 2012Q3

REPORT INFORMATION
  Report Type: 
  Country: None (occurrence: None)
  Receive Date: 20120706
  Receipt Date: 20120621
  Transmission Date: 20120928
  Serious: Yes (Other)
  Sender: FDA-Public Use
  Company Number: DE-ROCHE-1081040

PATIENT
  Age: 18 Year
  Sex: Female

DRUGS (1)
  1. LARIAM [Suspect]
     Indication: MALARIA PROPHYLAXIS

REACTIONS (5)
  - AGORAPHOBIA [None]
  - FATIGUE [None]
  - DIZZINESS [None]
  - FEAR [None]
  - MALARIA [None]
